FAERS Safety Report 23715986 (Version 2)
Quarter: 2024Q2

REPORT INFORMATION
  Report Type: Spontaneous
  Country: EG (occurrence: EG)
  Receive Date: 20240408
  Receipt Date: 20240416
  Transmission Date: 20240716
  Serious: Yes (Other)
  Sender: FDA-Public Use
  Company Number: EG-NOVOPROD-1198055

PATIENT
  Age: 704 Month
  Sex: Male

DRUGS (5)
  1. ATOREZA [Concomitant]
     Indication: Blood cholesterol abnormal
     Dosage: ONCE DAILY
     Route: 048
  2. INSULIN ASPART [Suspect]
     Active Substance: INSULIN ASPART
     Indication: Type 1 diabetes mellitus
     Dosage: 56 IU, QD (30U MORNING AFTER BREAKFAST-16U AT LUNCH-10U AT NIGHT)
     Route: 058
     Dates: start: 2017
  3. BENFOTIAMINE\CYANOCOBALAMIN\PYRIDOXINE HYDROCHLORIDE [Concomitant]
     Active Substance: BENFOTIAMINE\CYANOCOBALAMIN\PYRIDOXINE HYDROCHLORIDE
     Indication: Hypoaesthesia
     Dosage: ONCE DAILY
     Route: 048
  4. COSOPT [Concomitant]
     Active Substance: DORZOLAMIDE HYDROCHLORIDE\TIMOLOL MALEATE
     Indication: Glaucoma
     Dosage: TWICE DAILY
     Route: 031
  5. SOLO FRESH [Concomitant]
     Indication: Dry eye
     Dosage: 3 TIMES DAILY
     Route: 031

REACTIONS (1)
  - Eye disorder [Not Recovered/Not Resolved]
